FAERS Safety Report 9530895 (Version 2)
Quarter: 2013Q3

REPORT INFORMATION
  Report Type: Spontaneous
  Country: IE (occurrence: IE)
  Receive Date: 20130918
  Receipt Date: 20130918
  Transmission Date: 20140515
  Serious: Yes (Hospitalization, Other)
  Sender: FDA-Public Use
  Company Number: IE-AMGEN-IRLSP2013051447

PATIENT
  Age: 71 Year
  Sex: Female
  Weight: 63.49 kg

DRUGS (4)
  1. PROLIA [Suspect]
     Indication: OSTEOPENIA
     Dosage: 60 MG, Q6MO, ONE TIME DOSE
     Route: 058
     Dates: start: 20110517
  2. IDEOS [Concomitant]
     Indication: CALCIUM DEFICIENCY
     Dosage: UNK UNK, QD
     Route: 048
     Dates: start: 20110129, end: 20110620
  3. ELTROXIN [Concomitant]
     Indication: HYPOTHYROIDISM
     Dosage: UNK MUG, QD
     Route: 048
     Dates: start: 20090127
  4. AMITRIPTILINA [Concomitant]
     Dosage: UNK MG, UNK
     Route: 048
     Dates: start: 20110505

REACTIONS (6)
  - Vertigo [Not Recovered/Not Resolved]
  - Malaise [Recovering/Resolving]
  - Nausea [Recovering/Resolving]
  - Blood pressure fluctuation [Recovering/Resolving]
  - Abasia [Unknown]
  - Impaired driving ability [Unknown]
